FAERS Safety Report 9742979 (Version 1)
Quarter: 2013Q4

REPORT INFORMATION
  Report Type: Spontaneous
  Country: BR (occurrence: BR)
  Receive Date: 20131210
  Receipt Date: 20131210
  Transmission Date: 20140711
  Serious: Yes (Hospitalization, Other)
  Sender: FDA-Public Use
  Company Number: BR-PFIZER INC-2013349289

PATIENT
  Age: 59 Year
  Sex: Female
  Weight: 74 kg

DRUGS (12)
  1. ATENOLOL [Suspect]
     Indication: HYPERTENSION
     Dosage: 50 MG, 2X/DAY
     Route: 048
     Dates: start: 2007
  2. ATORVASTATIN CALCIUM [Suspect]
     Indication: BLOOD CHOLESTEROL INCREASED
     Dosage: UNK, DAILY
     Route: 048
     Dates: start: 2007
  3. CLOPIDOGREL SULFATE [Suspect]
     Indication: MYOCARDIAL INFARCTION
     Dosage: UNK, DAILY
     Route: 048
     Dates: start: 2007, end: 20131114
  4. OMEPRAZOLE [Suspect]
     Indication: PROPHYLAXIS
     Dosage: 20 MG, DAILY
     Route: 048
     Dates: start: 2007, end: 20131122
  5. OMEPRAZOLE [Suspect]
     Dosage: 20 MG, 2X/DAY
     Route: 048
     Dates: start: 20131123
  6. ROSUVASTATIN CALCIUM [Suspect]
     Indication: BLOOD CHOLESTEROL INCREASED
     Dosage: 10 MG, DAILY
     Route: 048
     Dates: start: 201211
  7. SIMVASTATIN [Suspect]
     Indication: BLOOD CHOLESTEROL INCREASED
     Dosage: UNK, DAILY
     Route: 048
     Dates: end: 201211
  8. BRILINTA [Suspect]
     Indication: MYOCARDIAL INFARCTION
     Dosage: 90 MG, 2X/DAY
     Route: 048
     Dates: start: 20131115
  9. ASA [Concomitant]
     Indication: ANTICOAGULANT THERAPY
     Dosage: UNK, DAILY
     Route: 048
     Dates: start: 2007, end: 2011
  10. NITRENDIPINE [Concomitant]
     Indication: HYPERTENSION
     Dosage: UNK, DAILY
     Route: 048
     Dates: start: 2011
  11. LOSARTAN POTASSIUM [Concomitant]
     Indication: HYPERTENSION
     Dosage: 50 MG, 2X/DAY
     Route: 048
     Dates: start: 2011
  12. SOMALGIN [Concomitant]
     Indication: ANTICOAGULANT THERAPY
     Dosage: UNK, DAILY
     Route: 048
     Dates: start: 2011

REACTIONS (9)
  - Myocardial infarction [Recovered/Resolved]
  - Device occlusion [Recovered/Resolved]
  - Haematochezia [Recovered/Resolved]
  - Ear haemorrhage [Recovered/Resolved]
  - Blood cholesterol increased [Recovering/Resolving]
  - Decreased appetite [Not Recovered/Not Resolved]
  - Memory impairment [Not Recovered/Not Resolved]
  - Vomiting [Not Recovered/Not Resolved]
  - Off label use [Not Recovered/Not Resolved]
